FAERS Safety Report 5087589-7 (Version None)
Quarter: 2006Q3

REPORT INFORMATION
  Report Type: 
  Country: None (occurrence: None)
  Receive Date: 20060824
  Receipt Date: 20060629
  Transmission Date: 20061208
  Serious: Yes (Other)
  Sender: FDA-Public Use
  Company Number: PHBS2006NL09722

PATIENT
  Age: 78 Year
  Sex: Male

DRUGS (6)
  1. EMSELEX EXTENDED RELEASE [Suspect]
     Dosage: 7.5 MG/D
     Dates: start: 20060620
  2. EMSELEX EXTENDED RELEASE [Suspect]
     Dosage: 7.5 MG EVERY OTHER DAY
     Dates: start: 20060630, end: 20060728
  3. METOPROLOL - SLOW RELEASE [Concomitant]
     Dosage: 200 MG, QD
     Dates: start: 20040526
  4. EZETROL [Concomitant]
     Indication: HYPERLIPIDAEMIA
     Dates: start: 20050128
  5. PLAVIX [Concomitant]
     Dosage: 75 MG, QD
     Dates: start: 20030213
  6. SIMVASTATIN [Concomitant]
     Dosage: 40 MG, QD
     Dates: start: 20050610

REACTIONS (6)
  - APATHY [None]
  - ASTHENIA [None]
  - DEPRESSED MOOD [None]
  - DRY SKIN [None]
  - PRURITUS [None]
  - SKIN EXFOLIATION [None]
